FAERS Safety Report 5488595-0 (Version None)
Quarter: 2007Q4

REPORT INFORMATION
  Report Type: 
  Country: None (occurrence: None)
  Receive Date: 20071017
  Receipt Date: 20071009
  Transmission Date: 20080405
  Serious: Yes (Death, Life-Threatening)
  Sender: FDA-Public Use
  Company Number: US-GENENTECH-234344

PATIENT
  Sex: Male
  Weight: 79 kg

DRUGS (28)
  1. RSHAPO2L-TRAIL [Suspect]
     Indication: NON-HODGKIN'S LYMPHOMA
     Dosage: 4 MG/KG, UNK
     Route: 042
     Dates: start: 20061120
  2. RITUXAN [Suspect]
     Indication: NON-HODGKIN'S LYMPHOMA
     Dates: start: 20061117
  3. ALBUTEROL [Concomitant]
     Indication: DRUG USE FOR UNKNOWN INDICATION
     Dosage: 4 PUFF, UNK
  4. IPRATROPIUM BROMIDE [Concomitant]
     Indication: DRUG USE FOR UNKNOWN INDICATION
     Dosage: 4 PUFF, UNK
  5. AMIKACIN [Concomitant]
     Indication: DRUG USE FOR UNKNOWN INDICATION
     Dosage: 600 MG, SINGLE
     Route: 042
  6. COSYNTROPIN [Concomitant]
     Indication: DRUG USE FOR UNKNOWN INDICATION
     Dosage: 250 MG, SINGLE
     Route: 042
  7. DEXAMETHASONE [Concomitant]
     Indication: DRUG USE FOR UNKNOWN INDICATION
     Dosage: 4 MG, SINGLE
     Route: 040
  8. PEPCID [Concomitant]
     Indication: DRUG USE FOR UNKNOWN INDICATION
     Dosage: 20 MG, QD
     Route: 042
  9. FENTANYL CITRATE [Concomitant]
     Indication: DRUG USE FOR UNKNOWN INDICATION
     Dosage: 2000 A?G, UNK
     Route: 042
  10. GUAIFENESIN [Concomitant]
     Indication: DRUG USE FOR UNKNOWN INDICATION
     Dosage: 300 MG, PRN
     Route: 048
  11. HYDROCORTISONE [Concomitant]
     Indication: DRUG USE FOR UNKNOWN INDICATION
     Dosage: 20 MG, SINGLE
     Route: 042
  12. MEPERIDINE HCL [Concomitant]
     Indication: DRUG USE FOR UNKNOWN INDICATION
     Dosage: 25 MG, SINGLE
     Route: 042
  13. MIDAZOLAM HCL [Concomitant]
     Indication: DRUG USE FOR UNKNOWN INDICATION
     Dosage: 50 ML, UNK
     Route: 042
  14. PHENYTOIN [Concomitant]
     Indication: DRUG USE FOR UNKNOWN INDICATION
     Dosage: 10 MG, SINGLE
  15. ZOSYN [Concomitant]
     Indication: DRUG USE FOR UNKNOWN INDICATION
     Dosage: 2.25 G, Q6H
     Route: 042
  16. SODIUM BICARBONATE [Concomitant]
     Indication: DRUG USE FOR UNKNOWN INDICATION
     Dosage: 150 MEQ, SINGLE
     Route: 042
  17. SODIUM CHLORIDE [Concomitant]
     Indication: DRUG USE FOR UNKNOWN INDICATION
     Route: 042
  18. BACTRIM [Concomitant]
     Indication: DRUG USE FOR UNKNOWN INDICATION
     Dosage: 1 TABLET, QD
     Route: 048
  19. VANCOMYCIN [Concomitant]
     Indication: DRUG USE FOR UNKNOWN INDICATION
     Dosage: 1000 MG, SINGLE
     Route: 042
  20. CIPROFLOXACIN [Concomitant]
     Indication: DRUG USE FOR UNKNOWN INDICATION
  21. NEXIUM [Concomitant]
     Indication: DRUG USE FOR UNKNOWN INDICATION
  22. GCSF OR GMCSF [Concomitant]
     Indication: DRUG USE FOR UNKNOWN INDICATION
  23. HYDROCORTISONE [Concomitant]
  24. INSULIN (SLIDING SCALE) [Concomitant]
     Indication: DRUG USE FOR UNKNOWN INDICATION
  25. MERREM [Concomitant]
     Indication: DRUG USE FOR UNKNOWN INDICATION
  26. TIGECYCLINE [Concomitant]
     Indication: DRUG USE FOR UNKNOWN INDICATION
  27. VORICONAZOLE [Concomitant]
     Indication: DRUG USE FOR UNKNOWN INDICATION
  28. NEUPOGEN [Concomitant]
     Indication: DRUG USE FOR UNKNOWN INDICATION
     Dosage: 300 A?G, UNK
     Route: 058
     Dates: start: 20061121, end: 20061123

REACTIONS (1)
  - SEPSIS [None]
